FAERS Safety Report 4598095-8 (Version None)
Quarter: 2005Q1

REPORT INFORMATION
  Report Type: 
  Country: None (occurrence: None)
  Receive Date: 20050304
  Receipt Date: 20050221
  Transmission Date: 20050727
  Serious: Yes (Death)
  Sender: FDA-Public Use
  Company Number: ZA-NOVOPROD-242456

PATIENT
  Age: 54 Year
  Sex: Male

DRUGS (1)
  1. NOVOMIX 30 [Suspect]
     Indication: INSULIN-REQUIRING TYPE II DIABETES MELLITUS
     Dosage: 60 IU, QD
     Route: 058
     Dates: start: 20041005, end: 20050102

REACTIONS (1)
  - SEPSIS [None]
